FAERS Safety Report 21957798 (Version 1)
Quarter: 2023Q1

REPORT INFORMATION
  Report Type: Report from Study
  Country: US (occurrence: US)
  Receive Date: 20230206
  Receipt Date: 20230206
  Transmission Date: 20230418
  Serious: Yes (Other)
  Sender: FDA-Public Use
  Company Number: US-GLAXOSMITHKLINE-US2023AMR013551

PATIENT

DRUGS (1)
  1. FLUTICASONE FUROATE\UMECLIDINIUM BROMIDE\VILANTEROL TRIFENATATE [Suspect]
     Active Substance: FLUTICASONE FUROATE\UMECLIDINIUM BROMIDE\VILANTEROL TRIFENATATE
     Indication: Chronic obstructive pulmonary disease
     Dosage: UNK

REACTIONS (8)
  - Apnoea [Unknown]
  - General physical health deterioration [Unknown]
  - Dyspnoea [Unknown]
  - Feeling abnormal [Unknown]
  - Productive cough [Unknown]
  - Exercise tolerance decreased [Unknown]
  - Decreased activity [Unknown]
  - Drug ineffective [Unknown]
